FAERS Safety Report 10730041 (Version 4)
Quarter: 2015Q1

REPORT INFORMATION
  Report Type: Spontaneous
  Country: US (occurrence: US)
  Receive Date: 20150122
  Receipt Date: 20150202
  Transmission Date: 20150721
  Serious: No
  Sender: FDA-Public Use
  Company Number: US-GLAXOSMITHKLINE-A0966754A

PATIENT

DRUGS (20)
  1. LIPITOR [Concomitant]
     Active Substance: ATORVASTATIN CALCIUM
  2. PREDNISONE. [Concomitant]
     Active Substance: PREDNISONE
  3. DILTIAZEM [Concomitant]
     Active Substance: DILTIAZEM
  4. BENLYSTA [Suspect]
     Active Substance: BELIMUMAB
     Indication: SYSTEMIC LUPUS ERYTHEMATOSUS
     Route: 042
     Dates: start: 20110926
  5. CYMBALTA [Concomitant]
     Active Substance: DULOXETINE HYDROCHLORIDE
  6. CARAFATE [Concomitant]
     Active Substance: SUCRALFATE
  7. BENLYSTA [Suspect]
     Active Substance: BELIMUMAB
     Dates: start: 20110926
  8. AMBIEN [Concomitant]
     Active Substance: ZOLPIDEM TARTRATE
  9. MAGNESIUM [Concomitant]
     Active Substance: MAGNESIUM
  10. MULTIVITAMIN [Concomitant]
     Active Substance: VITAMINS
  11. PLAQUENIL [Concomitant]
     Active Substance: HYDROXYCHLOROQUINE SULFATE
  12. CELEBREX [Concomitant]
     Active Substance: CELECOXIB
  13. PROVIGIL [Concomitant]
     Active Substance: MODAFINIL
  14. TAGAMET [Concomitant]
     Active Substance: CIMETIDINE
  15. FUROSEMIDE. [Concomitant]
     Active Substance: FUROSEMIDE
  16. TRAMADOL [Concomitant]
     Active Substance: TRAMADOL
  17. METFORMIN [Concomitant]
     Active Substance: METFORMIN HYDROCHLORIDE
  18. GABAPENTIN. [Concomitant]
     Active Substance: GABAPENTIN
  19. COZAAR [Concomitant]
     Active Substance: LOSARTAN POTASSIUM
  20. PRILOSEC [Concomitant]
     Active Substance: OMEPRAZOLE MAGNESIUM

REACTIONS (9)
  - Oropharyngeal pain [Recovered/Resolved]
  - Laryngitis [Recovered/Resolved]
  - Headache [Recovered/Resolved]
  - Vision blurred [Recovered/Resolved]
  - Pain [Recovered/Resolved]
  - Fatigue [Recovered/Resolved]
  - Myalgia [Recovered/Resolved]
  - Flushing [Recovered/Resolved]
  - Pain in extremity [Recovered/Resolved]

NARRATIVE: CASE EVENT DATE: 201112
